FAERS Safety Report 9781311 (Version 2)
Quarter: 2014Q1

REPORT INFORMATION
  Report Type: Spontaneous
  Country: US (occurrence: US)
  Receive Date: 20131224
  Receipt Date: 20140213
  Transmission Date: 20141002
  Serious: Yes (Hospitalization)
  Sender: FDA-Public Use
  Company Number: US-UCBSA-106449

PATIENT
  Sex: Male
  Weight: 91 kg

DRUGS (3)
  1. KEPPRA [Suspect]
     Indication: EPILEPSY
     Dosage: UNKNOWN DOSE
     Dates: start: 200506
  2. KEPPRA XR [Suspect]
     Indication: EPILEPSY
     Dosage: TAKING FOR 6-7 YEARS
     Route: 048
  3. LAMICTAL [Concomitant]
     Indication: EPILEPSY
     Dosage: ABOUT 6-7 YEARS
     Route: 048

REACTIONS (2)
  - Prostate cancer [Recovered/Resolved]
  - Inappropriate schedule of drug administration [Not Recovered/Not Resolved]
